FAERS Safety Report 5770702-3 (Version None)
Quarter: 2008Q2

REPORT INFORMATION
  Report Type: 
  Country: None (occurrence: None)
  Receive Date: 20080613
  Receipt Date: 20080512
  Transmission Date: 20081010
  Serious: No
  Sender: FDA-Public Use
  Company Number: US-ABBOTT-08P-163-0451416-00

PATIENT
  Sex: Female
  Weight: 62.198 kg

DRUGS (1)
  1. HUMIRA [Suspect]
     Indication: PSORIATIC ARTHROPATHY
     Route: 058
     Dates: start: 20070501, end: 20080501

REACTIONS (6)
  - COUGH [None]
  - EAR PAIN [None]
  - EYE DISORDER [None]
  - FEELING ABNORMAL [None]
  - POSTNASAL DRIP [None]
  - RESPIRATORY DISORDER [None]
